FAERS Safety Report 7940808-9 (Version None)
Quarter: 2011Q4

REPORT INFORMATION
  Report Type: 
  Country: None (occurrence: None)
  Receive Date: 20111128
  Receipt Date: 20111122
  Transmission Date: 20120403
  Serious: Yes (Life-Threatening)
  Sender: FDA-Public Use
  Company Number: JP-PFIZER INC-2011196742

PATIENT
  Age: 57 Year
  Sex: Male
  Weight: 77.9 kg

DRUGS (2)
  1. SUTENT [Suspect]
     Dosage: 4 DF, 1X/DAY
     Route: 048
     Dates: start: 20110704, end: 20110728
  2. SUTENT [Suspect]
     Indication: RENAL CELL CARCINOMA
     Dosage: 25 MG, 1X/DAY
     Route: 048

REACTIONS (1)
  - INTERSTITIAL LUNG DISEASE [None]
